FAERS Safety Report 10069096 (Version 2)
Quarter: 2014Q2

REPORT INFORMATION
  Report Type: Spontaneous
  Country: JP (occurrence: JP)
  Receive Date: 20140409
  Receipt Date: 20140430
  Transmission Date: 20141212
  Serious: Yes (Other)
  Sender: FDA-Public Use
  Company Number: PHHY2014JP040727

PATIENT
  Sex: Female

DRUGS (2)
  1. LAMISIL [Suspect]
     Dosage: 125 MG, QD
     Route: 048
  2. RISPERDAL [Suspect]
     Dosage: UNK UKN, UNK

REACTIONS (2)
  - Paranoia [Recovered/Resolved]
  - Aggression [Recovered/Resolved]
